FAERS Safety Report 7014754-1 (Version None)
Quarter: 2010Q3

REPORT INFORMATION
  Report Type: 
  Country: None (occurrence: None)
  Receive Date: 20100927
  Receipt Date: 20100917
  Transmission Date: 20110219
  Serious: Yes (Death, Life-Threatening, Hospitalization)
  Sender: FDA-Public Use
  Company Number: CZ-ROCHE-728769

PATIENT
  Age: 62 Year
  Sex: Male

DRUGS (6)
  1. XELODA [Suspect]
     Indication: COLORECTAL CANCER
     Route: 065
     Dates: start: 20040101
  2. XELODA [Suspect]
     Dosage: REDUCED DOSAGE
     Route: 065
     Dates: end: 20060101
  3. IRINOTECAN HCL [Concomitant]
     Indication: COLORECTAL CANCER
     Dates: start: 20040101
  4. IRINOTECAN HCL [Concomitant]
     Dosage: AS XELIRI
  5. OXALIPLATIN [Concomitant]
     Indication: COLORECTAL CANCER
  6. OXALIPLATIN [Concomitant]
     Dosage: REDUCED DOSE

REACTIONS (7)
  - CIRCULATORY COLLAPSE [None]
  - DIARRHOEA [None]
  - DRUG TOXICITY [None]
  - MALIGNANT NEOPLASM PROGRESSION [None]
  - NEUTROPENIA [None]
  - PULMONARY OEDEMA [None]
  - PYREXIA [None]
